FAERS Safety Report 22399603 (Version 2)
Quarter: 2023Q2

REPORT INFORMATION
  Report Type: Spontaneous
  Country: US (occurrence: US)
  Receive Date: 20230602
  Receipt Date: 20230629
  Transmission Date: 20230721
  Serious: No
  Sender: FDA-Public Use
  Company Number: US-GSKCCFUS-Case-01710626_AE-96476

PATIENT
  Sex: Male

DRUGS (1)
  1. ADVAIR DISKUS [Suspect]
     Active Substance: FLUTICASONE PROPIONATE\SALMETEROL XINAFOATE
     Indication: Asthma
     Dosage: 1 PUFF(S), BID,250/50MCG
     Route: 055

REACTIONS (4)
  - Wrong technique in device usage process [Unknown]
  - Device use confusion [Unknown]
  - Therapeutic product effect decreased [Unknown]
  - Product complaint [Unknown]
